FAERS Safety Report 4402326-4 (Version None)
Quarter: 2004Q3

REPORT INFORMATION
  Report Type: 
  Country: None (occurrence: None)
  Receive Date: 20040716
  Receipt Date: 20040709
  Transmission Date: 20050211
  Serious: Yes (Hospitalization)
  Sender: FDA-Public Use
  Company Number: HQWYE968709JUL04

PATIENT
  Age: 15 Year
  Sex: Female

DRUGS (2)
  1. TRIONETTA (LEVONORGESTREL/ ETHINYL ESTRADIOL/ INERT, TABLET) [Suspect]
     Indication: CONTRACEPTION
     Dosage: 1 TABLET DAILY; ORAL
     Route: 048
     Dates: start: 20040201, end: 20040408
  2. TRIONETTA (LEVONORGESTREL/ ETHINYL ESTRADIOL/ INERT, TABLET) [Suspect]
     Indication: MENORRHAGIA
     Dosage: 1 TABLET DAILY; ORAL
     Route: 048
     Dates: start: 20040201, end: 20040408

REACTIONS (2)
  - MESENTERIC OCCLUSION [None]
  - MESENTERIC VEIN THROMBOSIS [None]
